FAERS Safety Report 11646985 (Version 1)
Quarter: 2015Q4

REPORT INFORMATION
  Report Type: Spontaneous
  Country: FR (occurrence: FR)
  Receive Date: 20151020
  Receipt Date: 20151020
  Transmission Date: 20160304
  Serious: Yes (Other)
  Sender: FDA-Public Use
  Company Number: FR-EMD SERONO-7285032

PATIENT
  Sex: Female
  Weight: 56 kg

DRUGS (1)
  1. REBIF [Suspect]
     Active Substance: INTERFERON BETA-1A
     Indication: MULTIPLE SCLEROSIS
     Dates: start: 20110104

REACTIONS (2)
  - Maternal exposure during pregnancy [Recovered/Resolved]
  - Foetal malformation [Recovered/Resolved]
